FAERS Safety Report 10004690 (Version 2)
Quarter: 2014Q1

REPORT INFORMATION
  Report Type: Spontaneous
  Country: US (occurrence: US)
  Receive Date: 20140312
  Receipt Date: 20140312
  Transmission Date: 20141002
  Serious: Yes (Other)
  Sender: FDA-Public Use
  Company Number: US-CELGENEUS-163-21880-13114764

PATIENT
  Sex: Male

DRUGS (5)
  1. REVLIMID [Suspect]
     Indication: PLASMA CELL MYELOMA
     Dosage: 5 MILLIGRAM
     Route: 048
     Dates: start: 20130720
  2. REVLIMID [Suspect]
     Dosage: 25 MILLIGRAM
     Route: 065
     Dates: start: 201107
  3. REVLIMID [Suspect]
     Dosage: 20 MILLIGRAM
     Route: 065
     Dates: start: 201203
  4. REVLIMID [Suspect]
     Dosage: 15 MILLIGRAM
     Route: 065
     Dates: start: 201302
  5. REVLIMID [Suspect]
     Dosage: 5 MILLIGRAM
     Route: 065
     Dates: start: 201311

REACTIONS (1)
  - Amnesia [Unknown]
